FAERS Safety Report 6029590-2 (Version None)
Quarter: 2009Q1

REPORT INFORMATION
  Report Type: 
  Country: None (occurrence: None)
  Receive Date: 20090107
  Receipt Date: 20081230
  Transmission Date: 20090719
  Serious: Yes (Hospitalization)
  Sender: FDA-Public Use
  Company Number: BR-ASTRAZENECA-2008UW28943

PATIENT
  Age: 69 Year
  Sex: Female

DRUGS (5)
  1. OMEPRAZOLE [Suspect]
     Indication: GASTRITIS
     Route: 048
     Dates: start: 20040101
  2. TENORETIC 100 [Suspect]
     Indication: HYPERTENSION
     Route: 048
     Dates: start: 20030101
  3. ARADOIS [Concomitant]
     Indication: HYPERTENSION
     Route: 048
     Dates: start: 20030101, end: 20080701
  4. LEXOTAN [Concomitant]
     Indication: SEDATION
     Route: 048
     Dates: start: 20000101
  5. SUSTRATE [Concomitant]
     Indication: ARRHYTHMIA
     Route: 048
     Dates: start: 20030101

REACTIONS (5)
  - ABDOMINAL PAIN [None]
  - CHOLELITHIASIS [None]
  - GASTRITIS [None]
  - HYPERTENSION [None]
  - OEDEMA PERIPHERAL [None]
